FAERS Safety Report 10039455 (Version 1)
Quarter: 2014Q1

REPORT INFORMATION
  Report Type: Spontaneous
  Country: US (occurrence: None)
  Receive Date: 20140324
  Receipt Date: 20140324
  Transmission Date: 20141002
  Serious: Yes (Death)
  Sender: FDA-Public Use
  Company Number: UTC-046107

PATIENT
  Sex: Female
  Weight: 52.61 kg

DRUGS (2)
  1. TYVASO [Suspect]
     Indication: COR PULMONALE CHRONIC
     Dosage: (108 MCG, 4 IN 1 D)
     Route: 055
     Dates: start: 20120921
  2. REVATIO (SILDENAPIL CITRATE) [Concomitant]

REACTIONS (1)
  - Death [None]
